FAERS Safety Report 21138774 (Version 3)
Quarter: 2022Q4

REPORT INFORMATION
  Report Type: Spontaneous
  Country: US (occurrence: US)
  Receive Date: 20220727
  Receipt Date: 20221108
  Transmission Date: 20230113
  Serious: Yes (Other)
  Sender: FDA-Public Use
  Company Number: US-PFIZER INC-PV202200030665

PATIENT
  Age: 29 Year
  Sex: Female

DRUGS (1)
  1. XELJANZ [Suspect]
     Active Substance: TOFACITINIB CITRATE
     Indication: Colitis ulcerative
     Dosage: 10 MG, 2X/DAY
     Route: 048
     Dates: start: 20220608

REACTIONS (9)
  - Colitis ulcerative [Not Recovered/Not Resolved]
  - Haematochezia [Not Recovered/Not Resolved]
  - Drug ineffective [Unknown]
  - Bowel movement irregularity [Not Recovered/Not Resolved]
  - Anaemia [Unknown]
  - COVID-19 [Recovering/Resolving]
  - Pyrexia [Recovering/Resolving]
  - Fatigue [Recovering/Resolving]
  - Product dose omission in error [Unknown]

NARRATIVE: CASE EVENT DATE: 20220101
